FAERS Safety Report 9625244 (Version 1)
Quarter: 2013Q4

REPORT INFORMATION
  Report Type: Spontaneous
  Country: US (occurrence: US)
  Receive Date: 20131016
  Receipt Date: 20131016
  Transmission Date: 20140711
  Serious: No
  Sender: FDA-Public Use
  Company Number: US-PFIZER INC-2013293297

PATIENT
  Sex: Male

DRUGS (8)
  1. NORVASC [Suspect]
     Dosage: UNK
  2. ALLEGRA [Suspect]
     Dosage: UNK
  3. OCSAAR [Suspect]
     Dosage: UNK
  4. KLOR-CON [Suspect]
     Dosage: UNK
  5. LEVITRA [Suspect]
     Dosage: UNK
  6. LOZOL [Suspect]
     Dosage: UNK
  7. MOBIC [Suspect]
     Dosage: UNK
  8. ZESTRIL [Suspect]
     Dosage: UNK

REACTIONS (1)
  - Drug hypersensitivity [Unknown]
